FAERS Safety Report 15165513 (Version 1)
Quarter: 2018Q3

REPORT INFORMATION
  Report Type: Spontaneous
  Country: US (occurrence: US)
  Receive Date: 20180621
  Receipt Date: 20180621
  Transmission Date: 20181010
  Serious: Yes (Disabling)
  Sender: FDA-Public Use
  Company Number: None

PATIENT
  Age: 41 Year
  Sex: Female
  Weight: 100.35 kg

DRUGS (2)
  1. GUMMY PRENATAL VITAMINS [Concomitant]
  2. TRAZODONE [Suspect]
     Active Substance: TRAZODONE HYDROCHLORIDE
     Indication: PRODUCT USED FOR UNKNOWN INDICATION
     Dates: start: 20180620, end: 20180621

REACTIONS (3)
  - Drug dispensed to wrong patient [None]
  - Exposure during pregnancy [None]
  - Wrong drug administered [None]

NARRATIVE: CASE EVENT DATE: 20180621
